FAERS Safety Report 15603710 (Version 1)
Quarter: 2018Q4

REPORT INFORMATION
  Report Type: Spontaneous
  Country: NL (occurrence: NL)
  Receive Date: 20181109
  Receipt Date: 20181109
  Transmission Date: 20190205
  Serious: Yes (Other)
  Sender: FDA-Public Use
  Company Number: NL-PERRIGO-18NL012506

PATIENT
  Age: 16 Year
  Sex: Female

DRUGS (2)
  1. DESLORATADINE. [Suspect]
     Active Substance: DESLORATADINE
     Indication: RHINITIS ALLERGIC
     Dosage: UNKNOWN, UNKNOWN
     Route: 048
  2. DESLORATADINE. [Suspect]
     Active Substance: DESLORATADINE
     Dosage: UNKNOWN, UNKNOWN
     Route: 048

REACTIONS (2)
  - Depression [Unknown]
  - Suicidal ideation [Unknown]
